FAERS Safety Report 8132883 (Version 5)
Quarter: 2013Q1

REPORT INFORMATION
  Report Type: Spontaneous
  Country: US (occurrence: US)
  Receive Date: 20110913
  Receipt Date: 20130110
  Transmission Date: 20140127
  Serious: Yes (Hospitalization, Disabling, Other)
  Sender: FDA-Public Use
  Company Number: US-BAYER-2011-082423

PATIENT
  Age: 32 Year
  Sex: Female
  Weight: 103 kg

DRUGS (31)
  1. YASMIN [Suspect]
     Indication: CONTRACEPTION
     Dosage: UNK
     Dates: start: 20020725, end: 20040113
  2. Z-PAK [Concomitant]
     Dosage: UNK
     Dates: start: 20030801
  3. HYDROCHLOROTHIAZIDE [Concomitant]
     Indication: FLUID RETENTION
     Dosage: UNK
     Dates: start: 2001, end: 2004
  4. ASPIRIN [Concomitant]
     Dosage: UNK
     Dates: start: 2001, end: 2004
  5. ATENOLOL [Concomitant]
     Indication: BLOOD PRESSURE ABNORMAL
     Dosage: UNK UNK, QD
     Dates: start: 2001, end: 2004
  6. RHINOCORT [Concomitant]
     Dosage: UNK
     Dates: start: 2002, end: 2004
  7. PREVACID [Concomitant]
     Indication: GASTROOESOPHAGEAL REFLUX DISEASE
     Dosage: UNK UNK, QD
     Dates: start: 20030924
  8. CLONIDINE [Concomitant]
     Indication: GASTROOESOPHAGEAL REFLUX DISEASE
     Dosage: UNK UNK, QD
     Dates: start: 20031002
  9. PREDNISONE [Concomitant]
     Dosage: 10 MG, QD
     Route: 048
     Dates: start: 20030826
  10. HYDROCODONE [Concomitant]
     Dosage: UNK
     Dates: start: 20020615, end: 20100515
  11. ALBUTEROL [Concomitant]
     Dosage: 90 MCG EVERY 6 HOURS
     Dates: start: 20020920, end: 2008
  12. ALBUTEROL [Concomitant]
  13. IPRATROPIUM BROMIDE [Concomitant]
     Dosage: EVERY 6 HOURS
     Dates: start: 20030801
  14. OXYCODONE/APAP [Concomitant]
     Indication: PAIN
     Dosage: 5/325MG EVERY 4-6 HOURS
     Route: 048
     Dates: start: 20030801
  15. POTASSIUM CHLORIDE [Concomitant]
     Indication: MINERAL SUPPLEMENTATION
     Dosage: 10 MEQ, QD
     Route: 048
     Dates: start: 20030801, end: 2011
  16. NYSTATIN [Concomitant]
     Dosage: 100000 U/ML, UNK
     Route: 048
     Dates: start: 20030805
  17. FLOVENT [Concomitant]
     Dosage: 2 PUFF(S), BID
     Dates: start: 20030818
  18. TORECAN [Concomitant]
     Indication: PAIN
     Dosage: 10 MG, EVERY 6-8 HOURS
     Dates: start: 20030801, end: 20030825
  19. PERCOCET [Concomitant]
     Dosage: 2.5/325, EVERY 6-8 HOURS
     Route: 048
     Dates: start: 20030903
  20. TRAMADOL [Concomitant]
     Indication: PAIN
     Dosage: 50 MG, EVERY 4-6 HOURS
     Route: 048
     Dates: start: 20011119, end: 20030922
  21. PHENERGAN [Concomitant]
     Dosage: 50 MG, UNK
     Route: 030
  22. PEPCID [Concomitant]
     Dosage: 20 MG, UNK
     Route: 048
  23. SOLU-MEDROL [Concomitant]
     Dosage: 125 MG, UNK
  24. CLAFORAN [Concomitant]
     Dosage: 1 GM
  25. TORADOL [Concomitant]
     Dosage: 30 MG, UNK
  26. COUGH AND COLD PREPARATIONS [Concomitant]
     Dosage: 1-1/2 TSP (TEASPOON) QID
     Route: 048
  27. LIBRAX [Concomitant]
     Dosage: 1 BID ( TWICE PER DAY)
  28. KCL [Concomitant]
     Dosage: 10 MEQ, DAILY
  29. ULTRAM [Concomitant]
  30. K-DUR [Concomitant]
  31. ZITHROMAX [Concomitant]

REACTIONS (23)
  - Pulmonary embolism [None]
  - Injury [None]
  - Pain [None]
  - Emotional distress [None]
  - Anxiety [None]
  - General physical health deterioration [None]
  - Asthenia [None]
  - Dyspnoea [None]
  - Chest pain [None]
  - Vomiting [None]
  - Lung disorder [None]
  - Fatigue [None]
  - Asthenia [None]
  - Speech disorder [None]
  - Extrasystoles [None]
  - Angina pectoris [None]
  - Muscle spasms [None]
  - Hypoaesthesia [None]
  - Paraesthesia [None]
  - Paraesthesia [None]
  - Insomnia [None]
  - Depression [None]
  - Off label use [None]
